FAERS Safety Report 7240403-3 (Version None)
Quarter: 2011Q1

REPORT INFORMATION
  Report Type: 
  Country: None (occurrence: None)
  Receive Date: 20110120
  Receipt Date: 20110120
  Transmission Date: 20110831
  Serious: No
  Sender: FDA-Public Use
  Company Number: None

PATIENT
  Age: 5 Year
  Sex: Male
  Weight: 30 kg

DRUGS (2)
  1. BENEFIX [Suspect]
     Indication: FACTOR VIII DEFICIENCY
     Dosage: 2040 2XW IV BOLUS
     Route: 040
     Dates: start: 20100116, end: 20110116
  2. BENEFIX [Suspect]
     Indication: HAEMARTHROSIS
     Dosage: 2040 2XW IV BOLUS
     Route: 040
     Dates: start: 20100116, end: 20110116

REACTIONS (1)
  - PRODUCT QUALITY ISSUE [None]
